FAERS Safety Report 4324589-6 (Version None)
Quarter: 2004Q1

REPORT INFORMATION
  Report Type: 
  Country: None (occurrence: None)
  Receive Date: 20040322
  Receipt Date: 20040311
  Transmission Date: 20041129
  Serious: Yes (Life-Threatening)
  Sender: FDA-Public Use
  Company Number: FR-JNJFOC-20040303040

PATIENT
  Age: 74 Year
  Sex: Female

DRUGS (5)
  1. REMICADE [Suspect]
     Indication: RHEUMATOID ARTHRITIS
     Dosage: 200 MG , 1 IN 8 WEEK, INTRAVENOUS
     Route: 042
     Dates: start: 20010808, end: 20020513
  2. METHOTREXATE [Suspect]
     Indication: RHEUMATOID ARTHRITIS
     Dosage: 10 MG, 1 IN 1 WEEK, ORAL
     Route: 048
     Dates: end: 20021004
  3. AZATHIOPRINE [Suspect]
     Indication: ARTHRITIS
     Dosage: 100 MG , 1 IN 1 DAY, ORAL
     Route: 048
     Dates: start: 20010217, end: 20010804
  4. CYCLOPHOSPHAMIDE [Suspect]
     Indication: ARTHRITIS
     Dosage: 900 MG, 1 IN 1 MONTH, INTRAVENOUS
     Route: 042
     Dates: start: 19991207, end: 20000719
  5. CYCLOPHOSPHAMIDE [Suspect]
     Indication: ARTHRITIS
     Dosage: 100 MG, 1 IN 1 DAY, ORAL
     Route: 048
     Dates: start: 20000821, end: 20010216

REACTIONS (4)
  - COLON CANCER [None]
  - DRUG INEFFECTIVE [None]
  - MALIGNANT NEOPLASM PROGRESSION [None]
  - METASTASES TO LIVER [None]
